FAERS Safety Report 18323055 (Version 1)
Quarter: 2020Q3

REPORT INFORMATION
  Report Type: Spontaneous
  Country: JP (occurrence: JP)
  Receive Date: 20200928
  Receipt Date: 20200928
  Transmission Date: 20201103
  Serious: Yes (Hospitalization, Other)
  Sender: FDA-Public Use
  Company Number: JP-RISING PHARMA HOLDINGS, INC.-2020RIS000240

PATIENT
  Sex: Male

DRUGS (1)
  1. METHIMAZOLE. [Suspect]
     Active Substance: METHIMAZOLE
     Indication: PRODUCT USED FOR UNKNOWN INDICATION
     Dosage: UNK
     Route: 064

REACTIONS (5)
  - Skull malformation [Unknown]
  - Gallbladder agenesis [Unknown]
  - Exomphalos [Unknown]
  - Gastrointestinal fistula [Unknown]
  - Foetal exposure during pregnancy [Unknown]
